FAERS Safety Report 10880373 (Version 1)
Quarter: 2015Q1

REPORT INFORMATION
  Report Type: Spontaneous
  Country: PT (occurrence: PT)
  Receive Date: 20150302
  Receipt Date: 20150302
  Transmission Date: 20150721
  Serious: Yes (Other)
  Sender: FDA-Public Use
  Company Number: PHHY2015PT022306

PATIENT
  Age: 62 Year
  Sex: Male

DRUGS (2)
  1. CARBOPLATIN. [Suspect]
     Active Substance: CARBOPLATIN
     Indication: BLADDER SQUAMOUS CELL CARCINOMA STAGE UNSPECIFIED
     Route: 065
  2. GEMCITABINE [Suspect]
     Active Substance: GEMCITABINE\GEMCITABINE HYDROCHLORIDE
     Indication: BLADDER SQUAMOUS CELL CARCINOMA STAGE UNSPECIFIED
     Route: 065

REACTIONS (3)
  - Renal impairment [Unknown]
  - Vertigo [Unknown]
  - Nausea [Unknown]
